FAERS Safety Report 8136220-2 (Version None)
Quarter: 2012Q1

REPORT INFORMATION
  Report Type: 
  Country: None (occurrence: None)
  Receive Date: 20120210
  Receipt Date: 20120131
  Transmission Date: 20120608
  Serious: Yes (Other)
  Sender: FDA-Public Use
  Company Number: 2011SP059878

PATIENT
  Age: 81 Year
  Sex: Female

DRUGS (6)
  1. MIANSERIN HYDROCHLORIDE [Concomitant]
  2. LITHIUM CARBONATE [Suspect]
     Indication: PRODUCT USED FOR UNKNOWN INDICATION
     Dosage: PO
     Route: 048
  3. HYDROCHLORIDE [Concomitant]
  4. REMERON [Suspect]
     Indication: PRODUCT USED FOR UNKNOWN INDICATION
     Dosage: 30 MG;QD;PO
     Route: 048
  5. PAROXETINE HYDROCHLORIDE [Concomitant]
  6. CLOMIPRAMINE HCL [Concomitant]

REACTIONS (3)
  - SICK SINUS SYNDROME [None]
  - LOSS OF CONSCIOUSNESS [None]
  - SINUS ARREST [None]
